FAERS Safety Report 25456525 (Version 1)
Quarter: 2025Q2

REPORT INFORMATION
  Report Type: Spontaneous
  Country: US (occurrence: US)
  Receive Date: 20250619
  Receipt Date: 20250619
  Transmission Date: 20250716
  Serious: No
  Sender: TAIHO ONCOLOGY INC
  Company Number: US-TAIHOP-2025-006477

PATIENT
  Sex: Male

DRUGS (1)
  1. INQOVI [Suspect]
     Active Substance: CEDAZURIDINE\DECITABINE
     Indication: Chronic myelomonocytic leukaemia
     Dosage: CYCLE UNKNOWN?135 MG (DECITABINE 35 MG + CEDAZURIDINE 100 MG) ON DAYS 1-4
     Route: 048

REACTIONS (1)
  - Cytopenia [Unknown]
